FAERS Safety Report 5164801-7 (Version None)
Quarter: 2006Q4

REPORT INFORMATION
  Report Type: 
  Country: None (occurrence: None)
  Receive Date: 20061205
  Receipt Date: 20061110
  Transmission Date: 20070319
  Serious: Yes (Other)
  Sender: FDA-Public Use
  Company Number: JP-AVENTIS-200613509JP

PATIENT
  Age: 83 Year
  Sex: Female
  Weight: 40 kg

DRUGS (11)
  1. LASIX [Suspect]
     Route: 048
     Dates: start: 20060128, end: 20060731
  2. LASIX [Suspect]
     Route: 048
     Dates: start: 20060801
  3. PLAVIX [Suspect]
     Indication: CEREBRAL INFARCTION
     Dates: start: 20060802, end: 20060829
  4. DIART [Suspect]
     Indication: CARDIAC FAILURE
     Route: 048
     Dates: start: 20060128
  5. PIROLACTON [Suspect]
     Indication: CARDIAC FAILURE
     Route: 048
     Dates: start: 20060128
  6. WARFARIN SODIUM [Concomitant]
     Indication: ATRIAL FIBRILLATION
     Route: 048
     Dates: start: 20060128
  7. GASTER [Concomitant]
     Indication: GASTRIC ULCER
     Route: 048
     Dates: start: 20060128
  8. DIGOXIN [Concomitant]
     Indication: CARDIAC FAILURE
     Route: 048
     Dates: start: 20060128
  9. THYRADIN [Concomitant]
     Indication: HYPOTHYROIDISM
     Route: 048
     Dates: start: 20060128
  10. SLOW-K [Concomitant]
     Indication: HYPOKALAEMIA
     Route: 048
     Dates: start: 20060128
  11. MAGNESIUM OXIDE [Concomitant]
     Route: 048
     Dates: start: 20060206

REACTIONS (1)
  - RENAL IMPAIRMENT [None]
